FAERS Safety Report 21989074 (Version 4)
Quarter: 2023Q2

REPORT INFORMATION
  Report Type: Spontaneous
  Country: JP (occurrence: JP)
  Receive Date: 20230214
  Receipt Date: 20230403
  Transmission Date: 20230722
  Serious: Yes (Death, Life-Threatening, Hospitalization, Other)
  Sender: FDA-Public Use
  Company Number: JP-GSKJP-JP2023JPN022474AA

PATIENT

DRUGS (8)
  1. DAPRODUSTAT [Suspect]
     Active Substance: DAPRODUSTAT
     Indication: Nephrogenic anaemia
     Dosage: 4 MG
     Route: 048
     Dates: start: 20230201, end: 20230209
  2. AMLODIPINE BESYLATE [Concomitant]
     Active Substance: AMLODIPINE BESYLATE
     Indication: Hypertension
     Dosage: 5 MG
     Route: 048
     Dates: end: 20230210
  3. FEBUXOSTAT [Concomitant]
     Active Substance: FEBUXOSTAT
     Indication: Gout
     Dosage: 10 MG
     Route: 048
     Dates: end: 20230210
  4. CLOPIDOGREL BISULFATE [Concomitant]
     Active Substance: CLOPIDOGREL BISULFATE
     Indication: Cerebral infarction
     Dosage: 75 MG, TID,AFTER A MEAL
     Route: 048
     Dates: start: 20221219, end: 20230210
  5. CLOPIDOGREL BISULFATE [Concomitant]
     Active Substance: CLOPIDOGREL BISULFATE
     Indication: Embolism
  6. ENTRESTO (SACUBITRIL VALSARTAN SODIUM HYDRATE) [Concomitant]
     Indication: Cardiac failure
     Dosage: 100 MG
     Route: 048
     Dates: end: 20230210
  7. ROXADUSTAT [Concomitant]
     Active Substance: ROXADUSTAT
     Indication: Nephrogenic anaemia
     Dosage: UNK, 3 TIMES/WEEK
  8. ROXADUSTAT [Concomitant]
     Active Substance: ROXADUSTAT
     Dosage: 100 MG
     Dates: start: 20230105, end: 20230131

REACTIONS (9)
  - Peripheral arterial occlusive disease [Not Recovered/Not Resolved]
  - Skin discolouration [Not Recovered/Not Resolved]
  - Feeling cold [Not Recovered/Not Resolved]
  - Cardiac failure [Fatal]
  - Cerebral infarction [Fatal]
  - Embolism [Fatal]
  - Chronic kidney disease [Fatal]
  - Prescribed overdose [Unknown]
  - Off label use [Unknown]

NARRATIVE: CASE EVENT DATE: 20230201
